FAERS Safety Report 6193000-5 (Version None)
Quarter: 2009Q2

REPORT INFORMATION
  Report Type: 
  Country: None (occurrence: None)
  Receive Date: 20090513
  Receipt Date: 20090513
  Transmission Date: 20091009
  Serious: No
  Sender: FDA-Public Use
  Company Number: None

PATIENT

DRUGS (1)
  1. ALPRAZOLAM [Suspect]
     Indication: ANXIETY
     Dosage: 2MG 1-3 TIMES DAILY PO
     Route: 048
     Dates: start: 20090324, end: 20090513

REACTIONS (1)
  - MEDICATION ERROR [None]
